FAERS Safety Report 19867569 (Version 2)
Quarter: 2021Q4

REPORT INFORMATION
  Report Type: Report from Study
  Country: AU (occurrence: AU)
  Receive Date: 20210921
  Receipt Date: 20211101
  Transmission Date: 20220303
  Serious: Yes (Other)
  Sender: FDA-Public Use
  Company Number: AU-NOVARTISPH-NVSC2021AU213753

PATIENT
  Age: 59 Year
  Sex: Female

DRUGS (2)
  1. KESIMPTA [Suspect]
     Active Substance: OFATUMUMAB
     Indication: Relapsing multiple sclerosis
     Dosage: 20 MG, QMO
     Route: 058
     Dates: start: 20210527
  2. KESIMPTA [Suspect]
     Active Substance: OFATUMUMAB
     Dosage: UNK (LOADING DOSE AND THEN 3 MORE INJECTION)
     Route: 065
     Dates: start: 20210603

REACTIONS (11)
  - Psoriatic arthropathy [Unknown]
  - Emotional distress [Unknown]
  - Dactylitis [Unknown]
  - Chest pain [Unknown]
  - Costochondritis [Unknown]
  - Arthralgia [Unknown]
  - Sacroiliitis [Unknown]
  - Pain in jaw [Unknown]
  - Skin plaque [Unknown]
  - Peripheral swelling [Unknown]
  - Pain in extremity [Unknown]

NARRATIVE: CASE EVENT DATE: 20210701
